FAERS Safety Report 11267215 (Version 4)
Quarter: 2015Q3

REPORT INFORMATION
  Report Type: Report from Study
  Country: DE (occurrence: DE)
  Receive Date: 20150713
  Receipt Date: 20150930
  Transmission Date: 20151125
  Serious: Yes (Hospitalization, Other)
  Sender: FDA-Public Use
  Company Number: DE-GILEAD-2015-0161796

PATIENT
  Age: 80 Year
  Sex: Female
  Weight: 58 kg

DRUGS (12)
  1. REQUIP [Concomitant]
     Active Substance: ROPINIROLE HYDROCHLORIDE
     Indication: PARKINSON^S DISEASE
  2. PROPRANOLOL [Concomitant]
     Active Substance: PROPRANOLOL\PROPRANOLOL HYDROCHLORIDE
  3. LACTULOSE. [Concomitant]
     Active Substance: LACTULOSE
  4. SPIRONOLACTONE. [Concomitant]
     Active Substance: SPIRONOLACTONE
  5. VITAMIN B1 AND B6 [Concomitant]
     Active Substance: PYRIDOXINE HYDROCHLORIDE\THIAMINE HYDROCHLORIDE
  6. MAGNETRANS                         /07349401/ [Concomitant]
  7. ALLOPURINOL. [Concomitant]
     Active Substance: ALLOPURINOL
     Dosage: UNK
     Dates: start: 20150702
  8. FERROSANOL [Concomitant]
     Active Substance: FERROUS GLUCONATE
  9. LEDIPASVIR/SOFOSBUVIR [Suspect]
     Active Substance: LEDIPASVIR\SOFOSBUVIR
     Indication: CHRONIC HEPATITIS C
     Dosage: 1 DF, QD
     Route: 048
     Dates: start: 20150620, end: 20150911
  10. COPEGUS [Suspect]
     Active Substance: RIBAVIRIN
     Indication: CHRONIC HEPATITIS C
     Dosage: 800 MG, QD
     Route: 048
     Dates: start: 20150620, end: 20150911
  11. HEPA MERZ [Concomitant]
  12. TORASEMID [Concomitant]
     Active Substance: TORSEMIDE

REACTIONS (6)
  - Dizziness [Recovered/Resolved]
  - Fatigue [Recovering/Resolving]
  - Dehydration [Recovered/Resolved]
  - Blood creatinine increased [Unknown]
  - Hepatic encephalopathy [Unknown]
  - Overdose [Unknown]

NARRATIVE: CASE EVENT DATE: 20150628
